FAERS Safety Report 9148930 (Version 1)
Quarter: 2013Q1

REPORT INFORMATION
  Report Type: Spontaneous
  Country: US (occurrence: US)
  Receive Date: 20130308
  Receipt Date: 20130308
  Transmission Date: 20140127
  Serious: No
  Sender: FDA-Public Use
  Company Number: US-ENDO PHARMACEUTICALS INC.-OPCR20121000

PATIENT
  Age: 63 Year
  Sex: Female

DRUGS (4)
  1. OPANA ER [Suspect]
     Indication: PAIN
     Dosage: UNKNOWN
     Route: 048
     Dates: start: 2012
  2. OXYCODONE HCL 30MG [Concomitant]
     Indication: PAIN
     Route: 048
  3. FENTANYL [Concomitant]
     Indication: PAIN
     Route: 065
  4. FENTANYL [Concomitant]
     Indication: PAIN
     Route: 065

REACTIONS (1)
  - Medication residue present [Recovered/Resolved]
